FAERS Safety Report 8244778-8 (Version None)
Quarter: 2012Q1

REPORT INFORMATION
  Report Type: 
  Country: None (occurrence: None)
  Receive Date: 20120329
  Receipt Date: 20110401
  Transmission Date: 20120608
  Serious: No
  Sender: FDA-Public Use
  Company Number: US-MYLANLABS-2011S1007032

PATIENT
  Age: 49 Year
  Sex: Female

DRUGS (4)
  1. DILAUDID [Concomitant]
  2. FENTANYL-100 [Suspect]
     Dosage: CHANGED Q48H
     Route: 062
     Dates: start: 20100701
  3. FENTANYL-100 [Suspect]
     Indication: COMPLEX REGIONAL PAIN SYNDROME
     Dosage: CHANGED Q48H
     Route: 062
     Dates: start: 20100701
  4. METHADONE HCL [Concomitant]

REACTIONS (3)
  - COGNITIVE DISORDER [None]
  - RESPIRATORY RATE DECREASED [None]
  - BREATH SOUNDS ABNORMAL [None]
